FAERS Safety Report 19074006 (Version 1)
Quarter: 2021Q1

REPORT INFORMATION
  Report Type: Spontaneous
  Country: NL (occurrence: NL)
  Receive Date: 20210330
  Receipt Date: 20210330
  Transmission Date: 20210420
  Serious: Yes (Other)
  Sender: FDA-Public Use
  Company Number: NL-TEVA-2021-NL-1895912

PATIENT
  Age: 71 Year
  Sex: Female

DRUGS (5)
  1. METFORMINE TABLET   500MG / BRAND NAME NOT SPECIFIED [Concomitant]
     Active Substance: METFORMIN HYDROCHLORIDE
     Dosage: THERAPY END DATE ASKU
     Dates: start: 2005
  2. HYDROCHLOORTHIAZIDE TABLET 12,5MG / BRAND NAME NOT SPECIFIED [Concomitant]
     Active Substance: HYDROCHLOROTHIAZIDE
     Dosage: THERAPY START DATE ASKU, THERAPY END DATE ASKU
  3. ATORVASTATINE TABLET 20MG / BRAND NAME NOT SPECIFIED [Concomitant]
     Active Substance: ATORVASTATIN
     Dosage: THERAPY START DATE ASKU, THERAPY END DATE ASKU
  4. LISINOPRIL TABLET 20MG / BRAND NAME NOT SPECIFIED [Suspect]
     Active Substance: LISINOPRIL
     Indication: HYPERTENSION
     Dosage: 20MG,THERAPY END DATE  ASKU
     Dates: start: 20141101
  5. GLIMEPIRIDE TABLET 3MG / BRAND NAME NOT SPECIFIED [Concomitant]
     Dosage: THERAPY END DATE ASKU
     Dates: start: 2000

REACTIONS (14)
  - Hallucination [Recovered/Resolved]
  - Nausea [Recovered/Resolved]
  - Vision blurred [Recovered/Resolved]
  - Anaphylactic shock [Recovered/Resolved]
  - Pyrexia [Recovered/Resolved]
  - Pulse absent [Recovered/Resolved]
  - Eye pain [Recovered/Resolved]
  - Angioedema [Recovered/Resolved]
  - Noninfective sialoadenitis [Recovered/Resolved]
  - Monoplegia [Not Recovered/Not Resolved]
  - Seizure [Recovered/Resolved]
  - Vomiting [Recovered/Resolved]
  - Loss of consciousness [Recovered/Resolved]
  - Headache [Recovered/Resolved]

NARRATIVE: CASE EVENT DATE: 20141101
